FAERS Safety Report 19376630 (Version 2)
Quarter: 2021Q3

REPORT INFORMATION
  Report Type: Spontaneous
  Country: US (occurrence: US)
  Receive Date: 20210604
  Receipt Date: 20210715
  Transmission Date: 20211014
  Serious: Yes (Hospitalization)
  Sender: FDA-Public Use
  Company Number: US-ASTRAZENECA-2021A485475

PATIENT
  Age: 24213 Day
  Sex: Male
  Weight: 50.8 kg

DRUGS (5)
  1. OTHER MEDICATIONS [Concomitant]
     Active Substance: UNSPECIFIED INGREDIENT
  2. SPIRIVA [Concomitant]
     Active Substance: TIOTROPIUM BROMIDE MONOHYDRATE
  3. NEBULIZER [Concomitant]
     Active Substance: DEVICE
  4. RESCUE INHALER [Concomitant]
     Active Substance: UNSPECIFIED INGREDIENT
  5. SYMBICORT [Suspect]
     Active Substance: BUDESONIDE\FORMOTEROL FUMARATE DIHYDRATE
     Indication: LUNG DISORDER
     Dosage: 160/4.5 2 PUFFS TWO TIMES A DAY
     Route: 055

REACTIONS (7)
  - Renal disorder [Unknown]
  - Dyspnoea [Unknown]
  - Wrong technique in device usage process [Unknown]
  - Device delivery system issue [Unknown]
  - Weight decreased [Unknown]
  - Product use issue [Unknown]
  - Liver disorder [Unknown]

NARRATIVE: CASE EVENT DATE: 202101
